FAERS Safety Report 6596566-6 (Version None)
Quarter: 2010Q1

REPORT INFORMATION
  Report Type: 
  Country: None (occurrence: None)
  Receive Date: 20100223
  Receipt Date: 20100218
  Transmission Date: 20100710
  Serious: Yes (Other)
  Sender: FDA-Public Use
  Company Number: BG-ASTRAZENECA-2010SE07131

PATIENT
  Age: 57 Year
  Sex: Female

DRUGS (1)
  1. FASLODEX [Suspect]
     Indication: BREAST CANCER METASTATIC
     Dosage: TWO CONSECUTIVE 5 ML INTRAMUSCULAR INJECTIONS, ONE IN EACH BUTTOCK
     Route: 030
     Dates: start: 20100216

REACTIONS (4)
  - ASTHENIA [None]
  - CYANOSIS [None]
  - HYPOTONIA [None]
  - PERIPHERAL COLDNESS [None]
